FAERS Safety Report 5972326-1 (Version None)
Quarter: 2008Q4

REPORT INFORMATION
  Report Type: 
  Country: None (occurrence: None)
  Receive Date: 20081201
  Receipt Date: 20080908
  Transmission Date: 20090506
  Serious: No
  Sender: FDA-Public Use
  Company Number: US-TEVA-177212USA

PATIENT
  Sex: Male

DRUGS (2)
  1. AZILECT [Suspect]
     Route: 048
     Dates: start: 20060101, end: 20080801
  2. SINEMET [Concomitant]

REACTIONS (1)
  - MUSCULOSKELETAL PAIN [None]
